FAERS Safety Report 16425875 (Version 4)
Quarter: 2019Q2

REPORT INFORMATION
  Report Type: Spontaneous
  Country: DE (occurrence: DE)
  Receive Date: 20190613
  Receipt Date: 20190626
  Transmission Date: 20190711
  Serious: Yes (Hospitalization, Other)
  Sender: FDA-Public Use
  Company Number: PHHY2019DE129181

PATIENT
  Age: 62 Year
  Sex: Male

DRUGS (6)
  1. CARVEDILOL. [Suspect]
     Active Substance: CARVEDILOL
     Dosage: IN ADEQUATE DOSAGES
     Route: 065
  2. CARVEDILOL. [Suspect]
     Active Substance: CARVEDILOL
     Indication: HYPERTENSION
     Dosage: IN ADEQUATE DOSAGES
     Route: 065
  3. AMLODIPINE [Suspect]
     Active Substance: AMLODIPINE BESYLATE
     Indication: HYPERTENSION
     Dosage: IN ADEQUATE DOSAGES
     Route: 065
  4. RAMIPRIL. [Suspect]
     Active Substance: RAMIPRIL
     Indication: HYPERTENSION
     Dosage: 5 MG, QD
     Route: 065
  5. CATAPRESAN [Suspect]
     Active Substance: CLONIDINE
     Indication: HYPERTENSION
     Dosage: 0.25 MG, QD
     Route: 048
  6. HYDROCHLOROTHIAZIDE. [Suspect]
     Active Substance: HYDROCHLOROTHIAZIDE
     Indication: HYPERTENSION
     Dosage: IN ADEQUATE DOSAGES
     Route: 065

REACTIONS (8)
  - Generalised oedema [Unknown]
  - Nephrotic syndrome [Recovering/Resolving]
  - Renal artery stenosis [Unknown]
  - Neuropathy peripheral [Unknown]
  - IgA nephropathy [Unknown]
  - Proteinuria [Recovering/Resolving]
  - Renal impairment [Recovering/Resolving]
  - Blood pressure inadequately controlled [Recovering/Resolving]
